FAERS Safety Report 18712933 (Version 3)
Quarter: 2021Q1

REPORT INFORMATION
  Report Type: Report from Study
  Country: BR (occurrence: BR)
  Receive Date: 20210107
  Receipt Date: 20210205
  Transmission Date: 20210419
  Serious: Yes (Life-Threatening, Other)
  Sender: FDA-Public Use
  Company Number: NVSC2021BR002348

PATIENT
  Age: 66 Year
  Sex: Female

DRUGS (2)
  1. VOTRIENT [Suspect]
     Active Substance: PAZOPANIB HYDROCHLORIDE
     Dosage: UNK
     Route: 065
     Dates: start: 202007, end: 20201210
  2. VOTRIENT [Suspect]
     Active Substance: PAZOPANIB HYDROCHLORIDE
     Indication: RENAL CELL CARCINOMA
     Dosage: 2 DF, QD
     Route: 065
     Dates: start: 201901

REACTIONS (16)
  - Neoplasm malignant [Unknown]
  - Mood altered [Unknown]
  - Dyspnoea [Recovering/Resolving]
  - Peripheral swelling [Recovering/Resolving]
  - Depression [Unknown]
  - Fatigue [Recovered/Resolved]
  - Asthenia [Unknown]
  - Discouragement [Unknown]
  - Gait disturbance [Not Recovered/Not Resolved]
  - Malaise [Recovered/Resolved]
  - Malignant neoplasm progression [Unknown]
  - Feeling abnormal [Not Recovered/Not Resolved]
  - Metastatic renal cell carcinoma [Unknown]
  - Panic reaction [Not Recovered/Not Resolved]
  - Renal cell carcinoma recurrent [Unknown]
  - Swelling [Recovering/Resolving]

NARRATIVE: CASE EVENT DATE: 202007
